FAERS Safety Report 13064485 (Version 1)
Quarter: 2016Q4

REPORT INFORMATION
  Report Type: Spontaneous
  Country: US (occurrence: US)
  Receive Date: 20161227
  Receipt Date: 20161227
  Transmission Date: 20170207
  Serious: No
  Sender: FDA-Public Use
  Company Number: US-BAYER-2016-243011

PATIENT
  Sex: Female

DRUGS (2)
  1. AVONEX [Suspect]
     Active Substance: INTERFERON BETA-1A
  2. BETASERON [Suspect]
     Active Substance: INTERFERON BETA-1B
     Dosage: 250 ?G, UNK

REACTIONS (1)
  - Blood test abnormal [None]
